FAERS Safety Report 8602968-6 (Version None)
Quarter: 2012Q3

REPORT INFORMATION
  Report Type: 
  Country: None (occurrence: None)
  Receive Date: 20120817
  Receipt Date: 20120809
  Transmission Date: 20120928
  Serious: Yes (Hospitalization, Other)
  Sender: FDA-Public Use
  Company Number: US-MPIJNJ-2011-03297

PATIENT
  Sex: Male
  Weight: 52.2 kg

DRUGS (5)
  1. DEXAMETHASONE [Suspect]
     Indication: ACUTE LYMPHOCYTIC LEUKAEMIA
     Dosage: 4.5 MG, BID
     Route: 048
     Dates: start: 20110715, end: 20110725
  2. DEXAMETHASONE [Suspect]
     Dosage: UNK
     Route: 042
     Dates: start: 20110724, end: 20110725
  3. VELCADE [Suspect]
     Indication: ACUTE LYMPHOCYTIC LEUKAEMIA
     Dosage: 1.5 MG, CYCLIC
     Route: 042
     Dates: start: 20110712, end: 20110721
  4. VELCADE [Suspect]
     Dosage: 1.5 MG/M2,
     Dates: start: 20110718
  5. VORINOSTAT [Suspect]
     Indication: ACUTE LYMPHOCYTIC LEUKAEMIA
     Dosage: 300 MG, CYCLIC
     Route: 048
     Dates: start: 20110712, end: 20110725

REACTIONS (2)
  - BACTERIAL SEPSIS [None]
  - OESOPHAGEAL ULCER [None]
